FAERS Safety Report 20617686 (Version 2)
Quarter: 2022Q2

REPORT INFORMATION
  Report Type: Spontaneous
  Country: US (occurrence: US)
  Receive Date: 20220321
  Receipt Date: 20220401
  Transmission Date: 20220721
  Serious: Yes (Hospitalization, Other)
  Sender: FDA-Public Use
  Company Number: US-TEVA-2022-US-2018013

PATIENT
  Age: 26 Year
  Sex: Female

DRUGS (7)
  1. OXYCODONE [Suspect]
     Active Substance: OXYCODONE
     Indication: Back pain
     Route: 048
  2. VICODIN [Suspect]
     Active Substance: ACETAMINOPHEN\HYDROCODONE BITARTRATE
     Indication: Back pain
     Dosage: DAILY
     Route: 048
     Dates: start: 2008, end: 2010
  3. PERCOCET [Suspect]
     Active Substance: ACETAMINOPHEN\OXYCODONE HYDROCHLORIDE
     Indication: Back pain
     Dosage: DAILY
     Route: 048
     Dates: start: 2008, end: 2010
  4. OXYCONTIN [Suspect]
     Active Substance: OXYCODONE HYDROCHLORIDE
     Indication: Back pain
     Dosage: DAILY
     Route: 048
     Dates: start: 2008, end: 2010
  5. TALWIN [Suspect]
     Active Substance: PENTAZOCINE LACTATE
     Indication: Back pain
     Dosage: POSSIBLY IN -2009
     Route: 048
  6. METHADONE [Suspect]
     Active Substance: METHADONE HYDROCHLORIDE
     Indication: Drug dependence
     Route: 048
     Dates: start: 2009, end: 2010
  7. HEROIN [Suspect]
     Active Substance: DIAMORPHINE
     Indication: Back pain
     Dosage: 30 CC, 3-4 TIMES DAILY
     Dates: start: 2008, end: 2010

REACTIONS (15)
  - Drug dependence [Unknown]
  - Gestational diabetes [Unknown]
  - Beta haemolytic streptococcal infection [Recovered/Resolved]
  - Ketoacidosis [Unknown]
  - Seizure [Unknown]
  - Chlamydial infection [Recovered/Resolved]
  - Maternal exposure during pregnancy [Unknown]
  - Premature labour [Unknown]
  - Amniorrhoea [Recovered/Resolved]
  - Weight decreased [Unknown]
  - Vomiting [Recovered/Resolved]
  - Nausea [Recovered/Resolved]
  - Drug withdrawal syndrome [Unknown]
  - Restlessness [Unknown]
  - Urinary tract infection [Recovered/Resolved]

NARRATIVE: CASE EVENT DATE: 20090101
